FAERS Safety Report 9009688 (Version 2)
Quarter: 2013Q1

REPORT INFORMATION
  Report Type: Spontaneous
  Country: CA (occurrence: CA)
  Receive Date: 20130112
  Receipt Date: 20130215
  Transmission Date: 20140127
  Serious: Yes (Hospitalization, Other)
  Sender: FDA-Public Use
  Company Number: CA-AMGEN-CANSP2012069209

PATIENT
  Age: 78 Year
  Sex: Female
  Weight: 65.91 kg

DRUGS (1)
  1. PROLIA [Suspect]
     Indication: OSTEOPOROSIS
     Dosage: 60 MG, UNK
     Dates: start: 20111129

REACTIONS (5)
  - Synovial cyst [Unknown]
  - Aortic aneurysm [Unknown]
  - Bone pain [Unknown]
  - Blood cholesterol increased [Unknown]
  - Back pain [Unknown]
